FAERS Safety Report 25411812 (Version 1)
Quarter: 2025Q2

REPORT INFORMATION
  Report Type: Spontaneous
  Country: US (occurrence: US)
  Receive Date: 20250609
  Receipt Date: 20250609
  Transmission Date: 20250717
  Serious: No
  Sender: ITALFARMACO SPA
  Company Number: US-ITALFARMACO SPA-2178321

PATIENT
  Age: 34 Year
  Sex: Male
  Weight: 81.02 kg

DRUGS (11)
  1. DUVYZAT [Suspect]
     Active Substance: GIVINOSTAT
     Indication: Duchenne muscular dystrophy
     Dates: start: 20250313
  2. VITAMINS [Concomitant]
     Active Substance: VITAMINS
  3. JARDIANCE [Concomitant]
     Active Substance: EMPAGLIFLOZIN
  4. PEPCID [Concomitant]
     Active Substance: FAMOTIDINE
  5. TOPROL XL [Concomitant]
     Active Substance: METOPROLOL SUCCINATE
  6. LISINOPRIL [Concomitant]
     Active Substance: LISINOPRIL
  7. DOXYCYCLINE HYCLATE [Concomitant]
     Active Substance: DOXYCYCLINE HYCLATE
  8. EFFEXOR [Concomitant]
     Active Substance: VENLAFAXINE HYDROCHLORIDE
  9. EMFLAZA [Concomitant]
     Active Substance: DEFLAZACORT
  10. VITAMIN D3 [Concomitant]
     Active Substance: CHOLECALCIFEROL
  11. ASPIRIN [Concomitant]
     Active Substance: ASPIRIN

REACTIONS (2)
  - Off label use [Unknown]
  - Abdominal discomfort [Not Recovered/Not Resolved]

NARRATIVE: CASE EVENT DATE: 20250313
